FAERS Safety Report 6844598-2 (Version None)
Quarter: 2010Q2

REPORT INFORMATION
  Report Type: 
  Country: None (occurrence: None)
  Receive Date: 20100629
  Receipt Date: 20100503
  Transmission Date: 20101027
  Serious: No
  Sender: FDA-Public Use
  Company Number: US-WYE-H15083410

PATIENT
  Age: 70 Year
  Sex: Female
  Weight: 66.74 kg

DRUGS (2)
  1. PRISTIQ [Suspect]
     Indication: DEPRESSION
     Dosage: 50 MG 1X PER 1 DAY, ORAL
     Route: 048
     Dates: start: 20100329, end: 20100427
  2. TROSPIUM (TROSPIUM) [Concomitant]

REACTIONS (3)
  - BLISTER [None]
  - RASH ERYTHEMATOUS [None]
  - RASH MACULO-PAPULAR [None]
